FAERS Safety Report 23779783 (Version 1)
Quarter: 2024Q2

REPORT INFORMATION
  Report Type: Spontaneous
  Country: US (occurrence: US)
  Receive Date: 20240424
  Receipt Date: 20240424
  Transmission Date: 20240716
  Serious: Yes (Other)
  Sender: FDA-Public Use
  Company Number: US-PFIZER INC-PV202400050203

PATIENT
  Age: 58 Year
  Sex: Female
  Weight: 65.8 kg

DRUGS (6)
  1. IBRANCE [Suspect]
     Active Substance: PALBOCICLIB
     Indication: Peritoneal neoplasm
     Dosage: TAKE 1 TABLET (125 MG TOTAL) BY MOUTH DAILY FOLLOWED BY 7 DAYS OFF, REPEAT EVERY 28 DAYS
     Route: 048
  2. IBRANCE [Suspect]
     Active Substance: PALBOCICLIB
     Indication: Uterine leiomyoma
  3. AROMASIN [Suspect]
     Active Substance: EXEMESTANE
     Indication: Peritoneal neoplasm
     Dosage: UNK
     Dates: start: 20190523, end: 201907
  4. AROMASIN [Suspect]
     Active Substance: EXEMESTANE
     Indication: Uterine leiomyoma
     Dosage: 25 MG
     Route: 048
  5. FULVESTRANT [Suspect]
     Active Substance: FULVESTRANT
     Indication: Peritoneal neoplasm
     Dosage: UNK
  6. FULVESTRANT [Suspect]
     Active Substance: FULVESTRANT
     Indication: Uterine leiomyoma

REACTIONS (6)
  - Chronic kidney disease [Unknown]
  - Urinary tract obstruction [Unknown]
  - Renal failure [Unknown]
  - Hypertension [Unknown]
  - Lymphoedema [Unknown]
  - Off label use [Unknown]
